FAERS Safety Report 5615178-1 (Version None)
Quarter: 2008Q1

REPORT INFORMATION
  Report Type: 
  Country: None (occurrence: None)
  Receive Date: 20080206
  Receipt Date: 20071114
  Transmission Date: 20080703
  Serious: No
  Sender: FDA-Public Use
  Company Number: A0694521A

PATIENT
  Age: 69 Year
  Sex: Female

DRUGS (2)
  1. ARIXTRA [Suspect]
     Route: 058
     Dates: start: 20071101
  2. CONCURRENT MEDICATIONS [Concomitant]

REACTIONS (1)
  - PROTHROMBIN TIME PROLONGED [None]
